FAERS Safety Report 13967357 (Version 1)
Quarter: 2017Q3

REPORT INFORMATION
  Report Type: Spontaneous
  Country: US (occurrence: None)
  Receive Date: 20170914
  Receipt Date: 20170914
  Transmission Date: 20171128
  Serious: No
  Sender: FDA-Public Use
  Company Number: None

PATIENT
  Age: 69 Year
  Sex: Female
  Weight: 59 kg

DRUGS (1)
  1. ERBITUX [Suspect]
     Active Substance: CETUXIMAB
     Dates: end: 20170911

REACTIONS (3)
  - Muscle spasms [None]
  - Cardio-respiratory arrest [None]
  - Loss of consciousness [None]

NARRATIVE: CASE EVENT DATE: 20170911
